FAERS Safety Report 5650736-X (Version None)
Quarter: 2008Q1

REPORT INFORMATION
  Report Type: 
  Country: None (occurrence: None)
  Receive Date: 20080305
  Receipt Date: 20080226
  Transmission Date: 20080703
  Serious: Yes (Other)
  Sender: FDA-Public Use
  Company Number: PHBS2008IT02817

PATIENT
  Sex: Male

DRUGS (1)
  1. VOLTAREN [Suspect]
     Indication: POLLAKIURIA
     Dosage: 1 DF, Q48H
     Route: 030

REACTIONS (3)
  - ASPIRATION BIOPSY [None]
  - INJECTION SITE DISCOMFORT [None]
  - INJECTION SITE PAIN [None]
